FAERS Safety Report 8816313 (Version 1)
Quarter: 2012Q4

REPORT INFORMATION
  Report Type: 
  Country: US (occurrence: None)
  Receive Date: 20120928
  Receipt Date: 20120928
  Transmission Date: 20130627
  Serious: Yes (Hospitalization)
  Sender: FDA-Public Use
  Company Number: None

PATIENT
  Sex: Female
  Weight: 65.9 kg

DRUGS (2)
  1. CARBOPLATIN [Suspect]
     Dates: end: 20120918
  2. PACLITAXEL (TAXOL) [Suspect]
     Dates: end: 20120918

REACTIONS (6)
  - Diarrhoea [None]
  - Asthenia [None]
  - Blood pressure diastolic decreased [None]
  - Chills [None]
  - Culture stool positive [None]
  - Clostridium difficile infection [None]
